FAERS Safety Report 4435250-1 (Version None)
Quarter: 2004Q3

REPORT INFORMATION
  Report Type: 
  Country: None (occurrence: None)
  Receive Date: 20040827
  Receipt Date: 20040819
  Transmission Date: 20050211
  Serious: Yes (Hospitalization)
  Sender: FDA-Public Use
  Company Number: SE-GLAXOSMITHKLINE-B0343477A

PATIENT
  Age: 55 Year
  Sex: Female

DRUGS (1)
  1. SERETIDE DISKUS [Suspect]
     Indication: ASTHMA
     Route: 055
     Dates: start: 20030101, end: 20040301

REACTIONS (7)
  - BACK PAIN [None]
  - GAIT DISTURBANCE [None]
  - HAEMANGIOMA [None]
  - HAEMATOMA [None]
  - INFECTION [None]
  - MUSCLE CRAMP [None]
  - PERONEAL NERVE PALSY [None]
